FAERS Safety Report 5872620-9 (Version None)
Quarter: 2008Q3

REPORT INFORMATION
  Report Type: 
  Country: None (occurrence: None)
  Receive Date: 20080905
  Receipt Date: 20080827
  Transmission Date: 20090109
  Serious: Yes (Other)
  Sender: FDA-Public Use
  Company Number: US-ABBOTT-08P-163-0436453-00

PATIENT
  Age: 37 Year
  Sex: Male

DRUGS (16)
  1. RITONAVIR SOFT GELATIN CAPSULES [Suspect]
     Indication: HIV INFECTION
     Route: 048
     Dates: start: 20060110, end: 20080130
  2. RITONAVIR SOFT GELATIN CAPSULES [Suspect]
     Dates: start: 20080130
  3. APTIVUS [Suspect]
     Indication: HIV INFECTION
     Route: 048
     Dates: start: 20060110, end: 20080130
  4. RALTEGRAVIR [Suspect]
     Indication: HIV INFECTION
     Route: 048
     Dates: start: 20071204
  5. RALTEGRAVIR [Suspect]
     Route: 048
     Dates: start: 20080130
  6. TENOFOVIR [Suspect]
     Indication: ANTIRETROVIRAL THERAPY
     Dates: start: 20060110, end: 20060111
  7. TENOFOVIR [Suspect]
     Dates: start: 20080130
  8. LAMIVUDINE + ZIDOVUDINE [Suspect]
     Indication: ANTIRETROVIRAL THERAPY
     Route: 048
     Dates: start: 20060110, end: 20080111
  9. LAMIVUDINE + ZIDOVUDINE [Suspect]
     Route: 048
     Dates: start: 20080130
  10. ENFUVIRTIDE [Concomitant]
     Indication: ANTIRETROVIRAL THERAPY
     Dates: start: 20060110, end: 20071203
  11. ACYCLOVIR [Concomitant]
     Indication: DRUG USE FOR UNKNOWN INDICATION
     Route: 048
     Dates: start: 20060101
  12. CLONAZEPAM [Concomitant]
     Indication: DRUG USE FOR UNKNOWN INDICATION
     Route: 048
  13. ZOLPIDEM TARTRATE [Concomitant]
     Indication: DRUG USE FOR UNKNOWN INDICATION
     Route: 048
  14. TENOFOVIR DISOPROXIL FUMARATE [Concomitant]
     Indication: DRUG USE FOR UNKNOWN INDICATION
     Route: 048
     Dates: start: 20080130
  15. PREZISTA [Concomitant]
     Indication: DRUG USE FOR UNKNOWN INDICATION
     Dates: start: 20080130
  16. ISENTRESS [Concomitant]
     Indication: DRUG USE FOR UNKNOWN INDICATION
     Route: 048
     Dates: start: 20080130

REACTIONS (3)
  - LIVER FUNCTION TEST ABNORMAL [None]
  - TRANSAMINASES INCREASED [None]
  - URINE AMPHETAMINE POSITIVE [None]
